FAERS Safety Report 21198991 (Version 1)
Quarter: 2022Q3

REPORT INFORMATION
  Report Type: Report from Study
  Country: CA (occurrence: CA)
  Receive Date: 20220811
  Receipt Date: 20220811
  Transmission Date: 20221027
  Serious: Yes (Other)
  Sender: FDA-Public Use
  Company Number: CA-JNJFOC-20210550125

PATIENT
  Age: 12 Year
  Sex: Male

DRUGS (5)
  1. REMICADE [Suspect]
     Active Substance: INFLIXIMAB
     Indication: Colitis ulcerative
     Route: 042
     Dates: start: 20210301
  2. REMICADE [Suspect]
     Active Substance: INFLIXIMAB
     Dosage: INFUSION DELAYED AS PATIENT CONTACT WITH POSITIVE COVID CASE
     Route: 042
     Dates: start: 202105
  3. REMICADE [Suspect]
     Active Substance: INFLIXIMAB
     Route: 042
  4. REMICADE [Suspect]
     Active Substance: INFLIXIMAB
     Route: 042
  5. REMICADE [Suspect]
     Active Substance: INFLIXIMAB
     Route: 042

REACTIONS (2)
  - Colitis ulcerative [Unknown]
  - Drug level decreased [Unknown]
